FAERS Safety Report 26123559 (Version 1)
Quarter: 2025Q4

REPORT INFORMATION
  Report Type: Spontaneous
  Country: JP (occurrence: JP)
  Receive Date: 20251204
  Receipt Date: 20251204
  Transmission Date: 20260118
  Serious: Yes (Hospitalization, Other)
  Sender: MICRO LABS LIMITED
  Company Number: JP-MICRO LABS LIMITED-ML2025-06300

PATIENT
  Age: 26 Year
  Sex: Female

DRUGS (4)
  1. AMOXICILLIN [Suspect]
     Active Substance: AMOXICILLIN
     Indication: Dental caries
     Route: 048
  2. AMOXICILLIN [Suspect]
     Active Substance: AMOXICILLIN
     Indication: Pulpitis dental
  3. SECUKINUMAB [Concomitant]
     Active Substance: SECUKINUMAB
     Indication: Generalised pustular psoriasis
  4. SECUKINUMAB [Concomitant]
     Active Substance: SECUKINUMAB
     Indication: Deficiency of the interleukin-36 receptor antagonist

REACTIONS (1)
  - Generalised pustular psoriasis [Recovered/Resolved]
